FAERS Safety Report 5746523-4 (Version None)
Quarter: 2008Q2

REPORT INFORMATION
  Report Type: 
  Country: None (occurrence: None)
  Receive Date: 20080522
  Receipt Date: 20070725
  Transmission Date: 20081010
  Serious: No
  Sender: FDA-Public Use
  Company Number: US-BRISTOL-MYERS SQUIBB COMPANY-13857008

PATIENT
  Sex: Male
  Weight: 61 kg

DRUGS (7)
  1. CYTOXAN [Suspect]
     Dates: start: 20070201
  2. ADRIAMYCIN PFS [Suspect]
  3. VINCRISTINE [Suspect]
  4. TOPROL-XL [Concomitant]
  5. ALTACE [Concomitant]
  6. PRILOSEC [Concomitant]
  7. MULTI-VITAMIN [Concomitant]

REACTIONS (8)
  - ABDOMINAL DISTENSION [None]
  - ASTHENIA [None]
  - COUGH [None]
  - DECREASED ACTIVITY [None]
  - DYSGEUSIA [None]
  - FATIGUE [None]
  - NAUSEA [None]
  - RHINORRHOEA [None]
